FAERS Safety Report 13881686 (Version 1)
Quarter: 2017Q3

REPORT INFORMATION
  Report Type: Spontaneous
  Country: SG (occurrence: SG)
  Receive Date: 20170818
  Receipt Date: 20170818
  Transmission Date: 20171127
  Serious: Yes (Death, Other)
  Sender: FDA-Public Use
  Company Number: PHHY2017SG119689

PATIENT

DRUGS (1)
  1. PAZOPANIB [Suspect]
     Active Substance: PAZOPANIB
     Indication: NASOPHARYNGEAL CANCER
     Dosage: 800 MG, QD
     Route: 065

REACTIONS (2)
  - Toxicity to various agents [Unknown]
  - Myocardial infarction [Fatal]
